FAERS Safety Report 5676056-5 (Version None)
Quarter: 2008Q1

REPORT INFORMATION
  Report Type: 
  Country: None (occurrence: None)
  Receive Date: 20080321
  Receipt Date: 20080311
  Transmission Date: 20080703
  Serious: Yes (Hospitalization)
  Sender: FDA-Public Use
  Company Number: JP-ROCHE-551529

PATIENT
  Age: 38 Year
  Sex: Male
  Weight: 45 kg

DRUGS (1)
  1. TAMIFLU [Suspect]
     Route: 048
     Dates: start: 20080301, end: 20080302

REACTIONS (1)
  - INTESTINAL ISCHAEMIA [None]
